FAERS Safety Report 5753926-0 (Version None)
Quarter: 2008Q2

REPORT INFORMATION
  Report Type: 
  Country: None (occurrence: None)
  Receive Date: 20080527
  Receipt Date: 20080514
  Transmission Date: 20081010
  Serious: Yes (Life-Threatening, Hospitalization)
  Sender: FDA-Public Use
  Company Number: US023524

PATIENT
  Age: 49 Year
  Sex: Male

DRUGS (5)
  1. MODIODAL [Suspect]
     Indication: POTENTIATING DRUG INTERACTION
     Dosage: 100 MG, ORAL
     Route: 048
     Dates: start: 20071129
  2. NORITREN [Suspect]
     Indication: DEPRESSION
     Dosage: 250 MG, ORAL
     Route: 048
     Dates: start: 20080206
  3. NORITREN [Suspect]
     Indication: DEPRESSION
     Dosage: 350 MG, ORAL
     Route: 048
  4. NORITREN [Suspect]
     Indication: DEPRESSION
     Dosage: 300 MG, ORAL
     Route: 048
  5. VIAGRA [Concomitant]

REACTIONS (5)
  - ACUTE MYOCARDIAL INFARCTION [None]
  - CARDIAC FAILURE [None]
  - CARDIOMEGALY [None]
  - DISCOMFORT [None]
  - TACHYCARDIA [None]
